FAERS Safety Report 4842173-2 (Version None)
Quarter: 2005Q4

REPORT INFORMATION
  Report Type: 
  Country: None (occurrence: None)
  Receive Date: 20051130
  Receipt Date: 20051123
  Transmission Date: 20060501
  Serious: Yes (Hospitalization, Disabling)
  Sender: FDA-Public Use
  Company Number: US-MERCK-0511USA04441

PATIENT
  Age: 51 Year
  Sex: Female
  Weight: 52 kg

DRUGS (5)
  1. VIOXX [Suspect]
     Indication: PAIN
     Route: 048
     Dates: start: 19990301, end: 20000301
  2. VIOXX [Suspect]
     Indication: ARTHRITIS
     Route: 048
     Dates: start: 19990301, end: 20000301
  3. ATIVAN [Concomitant]
     Route: 065
  4. XANAX [Concomitant]
     Route: 065
  5. TYLENOL [Concomitant]
     Route: 065

REACTIONS (4)
  - ANXIETY [None]
  - CARDIAC DISORDER [None]
  - DEPRESSION [None]
  - MYOCARDIAL INFARCTION [None]
